FAERS Safety Report 5792493-2 (Version None)
Quarter: 2008Q2

REPORT INFORMATION
  Report Type: 
  Country: None (occurrence: None)
  Receive Date: 20080626
  Receipt Date: 20080618
  Transmission Date: 20081010
  Serious: Yes (Life-Threatening, Hospitalization, Other)
  Sender: FDA-Public Use
  Company Number: FR-PFIZER INC-2008051725

PATIENT
  Sex: Female

DRUGS (16)
  1. DOXORUBICIN HCL [Suspect]
     Indication: BURKITT'S LYMPHOMA
     Dosage: FREQ:EVERY DAYS AS NECESSARY
     Route: 042
     Dates: start: 20070114, end: 20070207
  2. DOXORUBICIN HCL [Suspect]
     Route: 042
  3. CYTARABINE [Suspect]
     Indication: BURKITT'S LYMPHOMA
     Dosage: FREQ:EVERY DAYS AS NECESSARY
     Dates: start: 20070301, end: 20070303
  4. CYTARABINE [Suspect]
     Route: 042
     Dates: start: 20070320, end: 20070323
  5. CYTARABINE [Suspect]
     Route: 058
     Dates: start: 20070623, end: 20070727
  6. METHOTREXATE [Suspect]
     Indication: BURKITT'S LYMPHOMA
     Dosage: FREQ:EVERY DAYS AS NECESSARY
     Route: 042
     Dates: start: 20070114, end: 20070207
  7. METHOTREXATE [Suspect]
     Route: 042
  8. VEPESID [Suspect]
     Indication: BURKITT'S LYMPHOMA
     Dosage: FREQ:EVERY DAYS AS NECESSARY
     Route: 042
     Dates: start: 20070301, end: 20070323
  9. VEPESID [Suspect]
     Route: 042
     Dates: start: 20070723, end: 20070725
  10. ENDOXAN [Suspect]
     Indication: BURKITT'S LYMPHOMA
     Dosage: TEXT:785 MG/DAY
     Route: 042
     Dates: start: 20070107, end: 20070623
  11. PREDNISOLONE [Suspect]
     Indication: BURKITT'S LYMPHOMA
     Dosage: FREQ:EVERY DAYS AS NECESSARY
     Route: 048
     Dates: start: 20070107, end: 20070207
  12. PREDNISOLONE [Suspect]
     Route: 048
     Dates: start: 20070601, end: 20070625
  13. MABTHERA [Suspect]
     Indication: BURKITT'S LYMPHOMA
     Dosage: FREQ:EVERY DAYS AS NECESSARY
     Route: 042
     Dates: start: 20070114, end: 20070207
  14. MABTHERA [Suspect]
     Route: 042
  15. ONCOVIN [Suspect]
     Dosage: FREQ:EVERY DAYS AS NECESSARY
     Dates: start: 20070107, end: 20070207
  16. ONCOVIN [Suspect]
     Dosage: FREQ:EVERY DAYS
     Route: 042

REACTIONS (6)
  - ACUTE MYELOID LEUKAEMIA [None]
  - ACUTE RESPIRATORY DISTRESS SYNDROME [None]
  - FEBRILE BONE MARROW APLASIA [None]
  - LEFT VENTRICULAR FAILURE [None]
  - SEPSIS [None]
  - STOMATITIS [None]
